FAERS Safety Report 14196625 (Version 1)
Quarter: 2017Q4

REPORT INFORMATION
  Report Type: Spontaneous
  Country: US (occurrence: US)
  Receive Date: 20171116
  Receipt Date: 20171116
  Transmission Date: 20180321
  Serious: No
  Sender: FDA-Public Use
  Company Number: US-BAUSCH-BL-2016-030192

PATIENT
  Age: 30 Year
  Sex: Female

DRUGS (2)
  1. MESALAMINE SUPPOSITORY [Concomitant]
     Indication: COLITIS ULCERATIVE
     Route: 054
  2. APRISO [Suspect]
     Active Substance: MESALAMINE
     Indication: COLITIS ULCERATIVE
     Route: 048
     Dates: start: 2014, end: 2015

REACTIONS (1)
  - Dermatitis contact [Recovering/Resolving]
